FAERS Safety Report 25453994 (Version 1)
Quarter: 2025Q2

REPORT INFORMATION
  Report Type: Spontaneous
  Country: DE (occurrence: DE)
  Receive Date: 20250619
  Receipt Date: 20250619
  Transmission Date: 20250717
  Serious: Yes (Other)
  Sender: IDORSIA PHARMACEUTICALS
  Company Number: None

PATIENT
  Age: 19 Year
  Sex: Male

DRUGS (1)
  1. QUVIVIQ [Suspect]
     Active Substance: DARIDOREXANT
     Indication: Product used for unknown indication
     Route: 048
     Dates: start: 20241010, end: 20241010

REACTIONS (6)
  - Sleep disorder [Recovered/Resolved]
  - Sleep paralysis [Recovered/Resolved]
  - Tinnitus [Recovered/Resolved]
  - Limb discomfort [Recovered/Resolved]
  - Mobility decreased [Recovered/Resolved]
  - Drug ineffective [Recovered/Resolved]

NARRATIVE: CASE EVENT DATE: 20241010
